FAERS Safety Report 4894736-6 (Version None)
Quarter: 2006Q1

REPORT INFORMATION
  Report Type: 
  Country: None (occurrence: None)
  Receive Date: 20060127
  Receipt Date: 20060127
  Transmission Date: 20060701
  Serious: Yes (Hospitalization, Disabling)
  Sender: FDA-Public Use
  Company Number: None

PATIENT
  Age: 79 Year
  Sex: Male

DRUGS (12)
  1. GATIFLOXACIN [Suspect]
     Indication: PNEUMONIA
     Dosage: 400MG  PO  QD
     Route: 048
  2. GLIPIZIDE [Suspect]
     Indication: DIABETES MELLITUS
     Dosage: GLIPIZIDE 5MG PO QD
     Route: 048
  3. ACETAMINOPHEN [Concomitant]
  4. ALBUTEROL SULFATE AUTOHALER [Concomitant]
  5. ASPIRIN [Concomitant]
  6. ENALAPRIL MALEATE [Concomitant]
  7. ENOXAPARIN SODIUM [Concomitant]
  8. FELODIPINE [Concomitant]
  9. FUROSEMIDE [Concomitant]
  10. GATIFLOXACIN [Concomitant]
  11. GUAIFENESIN [Concomitant]
  12. HUMULIN R [Concomitant]

REACTIONS (2)
  - BLOOD GLUCOSE DECREASED [None]
  - CONVULSION [None]
